FAERS Safety Report 12578003 (Version 1)
Quarter: 2016Q3

REPORT INFORMATION
  Report Type: Spontaneous
  Country: US (occurrence: None)
  Receive Date: 20160720
  Receipt Date: 20160720
  Transmission Date: 20161109
  Serious: No
  Sender: FDA-Public Use
  Company Number: None

PATIENT
  Sex: Female

DRUGS (1)
  1. ROSUVASTATIN 10MG ACTAVIS [Suspect]
     Active Substance: ROSUVASTATIN
     Route: 048
     Dates: start: 20160602, end: 20160704

REACTIONS (2)
  - Product substitution issue [None]
  - Headache [None]
